FAERS Safety Report 11526576 (Version 1)
Quarter: 2015Q3

REPORT INFORMATION
  Report Type: Spontaneous
  Country: US (occurrence: US)
  Receive Date: 20150903
  Receipt Date: 20150903
  Transmission Date: 20151125
  Serious: Yes (Other)
  Sender: FDA-Public Use
  Company Number: US-ELI_LILLY_AND_COMPANY-US201311000483

PATIENT
  Age: 18 Year
  Sex: Female

DRUGS (6)
  1. FLEXERIL [Interacting]
     Active Substance: CYCLOBENZAPRINE HYDROCHLORIDE
     Dosage: 15 MG, UNKNOWN
     Route: 065
  2. LAMICTAL [Concomitant]
     Active Substance: LAMOTRIGINE
  3. NUVIGIL [Concomitant]
     Active Substance: ARMODAFINIL
  4. FLEXERIL [Interacting]
     Active Substance: CYCLOBENZAPRINE HYDROCHLORIDE
     Indication: MUSCLE SPASMS
     Dosage: 10 MG, UNKNOWN
  5. CYMBALTA [Suspect]
     Active Substance: DULOXETINE HYDROCHLORIDE
     Indication: FIBROMYALGIA
     Dosage: 60 MG, QD
     Route: 065
     Dates: start: 2011
  6. TOPAMAX [Concomitant]
     Active Substance: TOPIRAMATE

REACTIONS (9)
  - Off label use [Unknown]
  - Drug interaction [Unknown]
  - Serotonin syndrome [Recovered/Resolved]
  - Headache [Recovering/Resolving]
  - Muscle spasms [Unknown]
  - Somnolence [Recovering/Resolving]
  - Myalgia [Recovering/Resolving]
  - Fatigue [Unknown]
  - Hot flush [Unknown]
